FAERS Safety Report 10395823 (Version 1)
Quarter: 2014Q1

REPORT INFORMATION
  Report Type: Spontaneous
  Country: US (occurrence: None)
  Receive Date: 20130724
  Receipt Date: 20130724
  Transmission Date: 20141002
  Serious: Yes (Hospitalization)
  Sender: FDA-Public Use
  Company Number: PHHY2010US34048

PATIENT
  Age: 62 Year
  Sex: Female
  Weight: 52 kg

DRUGS (2)
  1. GLEEVEC (IMATINIB) [Suspect]
     Indication: NEOPLASM MALIGNANT
     Route: 048
  2. PROCHLORPERAZLINE (PROCHLORPERAZINE) [Concomitant]

REACTIONS (5)
  - Diarrhoea [None]
  - Muscle spasms [None]
  - Depressed mood [None]
  - Periorbital oedema [None]
  - Fatigue [None]
